FAERS Safety Report 15318825 (Version 1)
Quarter: 2018Q3

REPORT INFORMATION
  Report Type: Spontaneous
  Country: US (occurrence: US)
  Receive Date: 20180819
  Receipt Date: 20180819
  Transmission Date: 20181010
  Serious: Yes (Disabling)
  Sender: FDA-Public Use
  Company Number: None

PATIENT
  Age: 47 Year
  Sex: Female
  Weight: 86.4 kg

DRUGS (2)
  1. OXYCODONE/ACETAMINOPHEN 7.5?325 [Suspect]
     Active Substance: ACETAMINOPHEN\OXYCODONE HYDROCHLORIDE
     Indication: PAIN
     Dosage: ?          QUANTITY:1 TABLET(S);?
     Route: 048
  2. IBUPROFEN. [Concomitant]
     Active Substance: IBUPROFEN

REACTIONS (7)
  - Drug ineffective [None]
  - Asthenia [None]
  - Pruritus [None]
  - Headache [None]
  - Tremor [None]
  - Tinnitus [None]
  - Malaise [None]

NARRATIVE: CASE EVENT DATE: 20180818
